FAERS Safety Report 12795532 (Version 1)
Quarter: 2016Q3

REPORT INFORMATION
  Report Type: Spontaneous
  Country: DK (occurrence: DK)
  Receive Date: 20160929
  Receipt Date: 20160929
  Transmission Date: 20161109
  Serious: Yes (Other)
  Sender: FDA-Public Use
  Company Number: DK-UCBSA-2016035862

PATIENT
  Age: 22 Year
  Sex: Female

DRUGS (4)
  1. NIZORAL [Concomitant]
     Active Substance: KETOCONAZOLE
     Indication: PRODUCT USED FOR UNKNOWN INDICATION
  2. TERBINAFINE. [Concomitant]
     Active Substance: TERBINAFINE
     Indication: FUNGAL INFECTION
     Dosage: UNK
  3. CIMZIA [Suspect]
     Active Substance: CERTOLIZUMAB PEGOL
     Indication: ANKYLOSING SPONDYLITIS
     Dosage: UNK
     Dates: start: 20150119, end: 20150511
  4. CYTOTEC [Suspect]
     Active Substance: MISOPROSTOL
     Indication: PRODUCT USED FOR UNKNOWN INDICATION
     Dosage: UNK
     Dates: start: 20150312

REACTIONS (8)
  - Alopecia areata [Unknown]
  - Rash [Unknown]
  - Pruritus [Unknown]
  - Drug ineffective [Unknown]
  - Pregnancy [Unknown]
  - Abortion induced [Unknown]
  - Fungal infection [Unknown]
  - Genital rash [Unknown]

NARRATIVE: CASE EVENT DATE: 2015
